FAERS Safety Report 8428013-3 (Version None)
Quarter: 2012Q2

REPORT INFORMATION
  Report Type: 
  Country: None (occurrence: None)
  Receive Date: 20120611
  Receipt Date: 20120104
  Transmission Date: 20120825
  Serious: No
  Sender: FDA-Public Use
  Company Number: US-ABBOTT-12P-163-0889090-00

PATIENT
  Sex: Female
  Weight: 90.8 kg

DRUGS (9)
  1. K-TAB [Suspect]
     Indication: MINERAL SUPPLEMENTATION
     Dates: start: 20111220
  2. SPIRONOLACTONE [Concomitant]
     Indication: BLOOD PRESSURE
  3. FUROSEMIDE [Concomitant]
     Indication: FLUID RETENTION
  4. MELOXICAM [Concomitant]
     Indication: ARTHRITIS
  5. SPIRONOLACTONE [Concomitant]
     Indication: FLUID RETENTION
  6. AMLODIPINE [Concomitant]
     Indication: BLOOD PRESSURE
  7. ZETIA [Concomitant]
     Indication: BLOOD CHOLESTEROL
  8. AVAPRO [Concomitant]
     Indication: BLOOD PRESSURE
  9. GABAPENTIN [Concomitant]
     Indication: NEUROPATHY PERIPHERAL

REACTIONS (1)
  - MEDICATION RESIDUE [None]
